FAERS Safety Report 24596188 (Version 2)
Quarter: 2024Q4

REPORT INFORMATION
  Report Type: Report from Study
  Country: DE (occurrence: DE)
  Receive Date: 20241110
  Receipt Date: 20241201
  Transmission Date: 20250115
  Serious: Yes (Hospitalization)
  Sender: ABBVIE
  Company Number: DE-ABBVIE-5993554

PATIENT
  Age: 41 Year
  Sex: Female

DRUGS (2)
  1. HUMIRA [Suspect]
     Active Substance: ADALIMUMAB
     Indication: Hidradenitis
     Route: 058
     Dates: start: 20240422
  2. DULOXETINE [Concomitant]
     Active Substance: DULOXETINE
     Indication: Depression
     Route: 048
     Dates: start: 2013

REACTIONS (4)
  - Hysterectomy [Not Recovered/Not Resolved]
  - Procedural pain [Not Recovered/Not Resolved]
  - Cervical conisation [Recovered/Resolved]
  - Cervical dysplasia [Unknown]

NARRATIVE: CASE EVENT DATE: 20240801
